FAERS Safety Report 22959734 (Version 3)
Quarter: 2023Q4

REPORT INFORMATION
  Report Type: Report from Study
  Country: US (occurrence: US)
  Receive Date: 20230920
  Receipt Date: 20231003
  Transmission Date: 20240110
  Serious: Yes (Hospitalization, Other)
  Sender: FDA-Public Use
  Company Number: US-ABBVIE-5410393

PATIENT
  Sex: Male
  Weight: 37.648 kg

DRUGS (3)
  1. HUMIRA [Suspect]
     Active Substance: ADALIMUMAB
     Indication: Crohn^s disease
     Dosage: TIME INTERVAL: TOTAL: 2ND LOADING DOSE?CITRATE FREE?FORM STRENGTH: 40 MILLIGRAM
     Route: 058
     Dates: start: 20230911, end: 20230911
  2. HUMIRA [Suspect]
     Active Substance: ADALIMUMAB
     Dosage: TIME INTERVAL: TOTAL: 1ST LOADING DOSE?CITRATE FREE?FORM STRENGTH: 40 MILLIGRAM
     Route: 058
     Dates: start: 20230828, end: 20230828
  3. HUMIRA [Suspect]
     Active Substance: ADALIMUMAB
     Dosage: CITRATE FREE?FORM STRENGTH: 40 MILLIGRAM??START DATE 2023
     Route: 058

REACTIONS (7)
  - Hypophagia [Not Recovered/Not Resolved]
  - Mesenteric lymphadenitis [Recovered/Resolved]
  - Pain [Unknown]
  - White blood cell count increased [Recovered/Resolved]
  - Dehydration [Recovering/Resolving]
  - Constipation [Recovered/Resolved]
  - Fatigue [Recovering/Resolving]

NARRATIVE: CASE EVENT DATE: 20230101
